FAERS Safety Report 6496075-9 (Version None)
Quarter: 2009Q4

REPORT INFORMATION
  Report Type: 
  Country: None (occurrence: None)
  Receive Date: 20091214
  Receipt Date: 20090923
  Transmission Date: 20100525
  Serious: No
  Sender: FDA-Public Use
  Company Number: US-BRISTOL-MYERS SQUIBB COMPANY-14791248

PATIENT
  Age: 35 Year
  Sex: Female
  Weight: 68 kg

DRUGS (2)
  1. ABILIFY [Suspect]
     Indication: BIPOLAR DISORDER
     Dosage: DOSE TITRATED UPTO 15MG OVER A MONTH
     Dates: start: 20090401, end: 20090901
  2. ABILIFY [Suspect]
     Indication: PSYCHOTIC DISORDER
     Dosage: DOSE TITRATED UPTO 15MG OVER A MONTH
     Dates: start: 20090401, end: 20090901

REACTIONS (1)
  - WEIGHT INCREASED [None]
